FAERS Safety Report 7656751-9 (Version None)
Quarter: 2011Q3

REPORT INFORMATION
  Report Type: 
  Country: None (occurrence: None)
  Receive Date: 20110804
  Receipt Date: 20110802
  Transmission Date: 20111222
  Serious: Yes (Death, Other)
  Sender: FDA-Public Use
  Company Number: GB-PFIZER INC-2011176938

PATIENT

DRUGS (1)
  1. LYRICA [Suspect]
     Dosage: 100 MG, UNK
     Route: 048

REACTIONS (2)
  - SUDDEN DEATH [None]
  - OVERDOSE [None]
